FAERS Safety Report 7284544-3 (Version None)
Quarter: 2011Q1

REPORT INFORMATION
  Report Type: 
  Country: None (occurrence: None)
  Receive Date: 20110209
  Receipt Date: 20110207
  Transmission Date: 20110831
  Serious: Yes (Other)
  Sender: FDA-Public Use
  Company Number: GY-BAYER-2010-002615

PATIENT

DRUGS (1)
  1. ULTRAVIST 150 [Suspect]
     Route: 042

REACTIONS (3)
  - VOMITING [None]
  - PRURITUS [None]
  - PRODUCT CONTAMINATION [None]
